FAERS Safety Report 22230091 (Version 1)
Quarter: 2023Q2

REPORT INFORMATION
  Report Type: Spontaneous
  Country: US (occurrence: US)
  Receive Date: 20230419
  Receipt Date: 20230419
  Transmission Date: 20230722
  Serious: No
  Sender: FDA-Public Use
  Company Number: US-MYLANLABS-2023M1031595

PATIENT
  Sex: Female

DRUGS (1)
  1. ESTRADIOL TRANSDERMAL SYSTEM [Suspect]
     Active Substance: ESTRADIOL
     Indication: Menopause
     Dosage: 0.05 MILLIGRAM, QD (TWICE A WEEK)
     Route: 062

REACTIONS (7)
  - Peripheral swelling [Unknown]
  - Pain in extremity [Unknown]
  - Breast swelling [Recovering/Resolving]
  - Nipple pain [Unknown]
  - Erythema [Unknown]
  - Weight increased [Unknown]
  - Breast tenderness [Recovering/Resolving]

NARRATIVE: CASE EVENT DATE: 20230301
